FAERS Safety Report 14738269 (Version 4)
Quarter: 2018Q3

REPORT INFORMATION
  Report Type: Spontaneous
  Country: US (occurrence: US)
  Receive Date: 20180409
  Receipt Date: 20180730
  Transmission Date: 20181010
  Serious: Yes (Death, Hospitalization, Other)
  Sender: FDA-Public Use
  Company Number: US-B.I. PHARMACEUTICALS,INC./RIDGEFIELD-2018-BI-018848

PATIENT
  Age: 68 Year
  Sex: Male

DRUGS (8)
  1. GEMCITABINE [Concomitant]
     Active Substance: GEMCITABINE\GEMCITABINE HYDROCHLORIDE
     Indication: BLADDER CANCER
     Route: 065
     Dates: start: 201704, end: 201803
  2. KEYTRUDA [Concomitant]
     Active Substance: PEMBROLIZUMAB
     Indication: BLADDER CANCER
     Route: 065
     Dates: start: 201704, end: 201803
  3. METOPROLOL. [Concomitant]
     Active Substance: METOPROLOL
     Indication: CARDIAC FAILURE CONGESTIVE
     Route: 048
  4. ASA [Concomitant]
     Active Substance: ASPIRIN
     Indication: CORONARY ARTERY DISEASE
     Route: 048
  5. GEMCITABINE [Concomitant]
     Active Substance: GEMCITABINE\GEMCITABINE HYDROCHLORIDE
     Indication: NEUROENDOCRINE CARCINOMA
  6. GILOTRIF [Suspect]
     Active Substance: AFATINIB
     Indication: NEUROENDOCRINE CARCINOMA OF THE BLADDER
     Route: 048
     Dates: start: 20180220, end: 20180307
  7. GILOTRIF [Suspect]
     Active Substance: AFATINIB
     Indication: EGFR GENE MUTATION
  8. KEYTRUDA [Concomitant]
     Active Substance: PEMBROLIZUMAB
     Indication: NEUROENDOCRINE CARCINOMA

REACTIONS (9)
  - Chromaturia [Unknown]
  - Haematuria [Unknown]
  - Fatigue [Unknown]
  - Hepatorenal syndrome [Fatal]
  - Hepatic enzyme increased [Unknown]
  - Blood creatinine increased [Unknown]
  - Peripheral swelling [Recovered/Resolved]
  - Jaundice [Unknown]
  - Off label use [Unknown]

NARRATIVE: CASE EVENT DATE: 20180220
